FAERS Safety Report 6825053-2 (Version None)
Quarter: 2010Q3

REPORT INFORMATION
  Report Type: 
  Country: None (occurrence: None)
  Receive Date: 20100708
  Receipt Date: 20061129
  Transmission Date: 20110219
  Serious: Yes (Other)
  Sender: FDA-Public Use
  Company Number: US-PFIZER INC-2006147167

PATIENT

DRUGS (1)
  1. CHANTIX [Suspect]

REACTIONS (5)
  - CONSTIPATION [None]
  - CONVULSION [None]
  - NAUSEA [None]
  - SYNCOPE [None]
  - UNEVALUABLE EVENT [None]
